FAERS Safety Report 5232678-7 (Version None)
Quarter: 2007Q1

REPORT INFORMATION
  Report Type: 
  Country: None (occurrence: None)
  Receive Date: 20070206
  Receipt Date: 20070206
  Transmission Date: 20070707
  Serious: Yes (Life-Threatening)
  Sender: FDA-Public Use
  Company Number: None

PATIENT
  Age: 50 Year
  Sex: Female
  Weight: 56.6996 kg

DRUGS (2)
  1. HALDOL [Suspect]
  2. PROLIXIN DECANOATE [Suspect]
     Dosage: 1/2 CC 2 WEEKS IM
     Route: 030

REACTIONS (1)
  - DISSOCIATIVE DISORDER [None]
